FAERS Safety Report 8551558-2 (Version None)
Quarter: 2012Q3

REPORT INFORMATION
  Report Type: 
  Country: None (occurrence: None)
  Receive Date: 20120730
  Receipt Date: 20120718
  Transmission Date: 20120928
  Serious: Yes (Death, Hospitalization, Disabling)
  Sender: FDA-Public Use
  Company Number: JP-BAYER-2012-017102

PATIENT
  Age: 71 Year
  Sex: Male
  Weight: 81 kg

DRUGS (6)
  1. FUROSEMIDE [Suspect]
     Indication: HYPERTENSION
     Dosage: 40 MG, QD
     Route: 048
     Dates: end: 20120222
  2. SUMIFERON [Concomitant]
     Indication: RENAL CELL CARCINOMA
     Dosage: UNK
     Dates: start: 20110329, end: 20120130
  3. VASELINE [Concomitant]
     Dosage: UNK
     Route: 065
  4. NEXAVAR [Suspect]
     Indication: RENAL CELL CARCINOMA
     Dosage: 400 MG, BID
     Route: 048
     Dates: start: 20120131, end: 20120214
  5. ALLOPURINOL [Suspect]
     Indication: HYPERURICAEMIA
     Dosage: 100 MG, QD
     Route: 048
     Dates: end: 20120318
  6. FUROSEMIDE [Suspect]
     Indication: RENAL FAILURE ACUTE
     Dosage: UNK
     Route: 042
     Dates: start: 20120214, end: 20120219

REACTIONS (9)
  - BLOOD CREATININE INCREASED [None]
  - GENERALISED OEDEMA [None]
  - WEIGHT INCREASED [None]
  - HYPOALBUMINAEMIA [None]
  - GLOMERULONEPHRITIS MEMBRANOUS [None]
  - STOMATITIS [None]
  - RENAL FAILURE ACUTE [None]
  - ACUTE MYOCARDIAL INFARCTION [None]
  - PALMAR-PLANTAR ERYTHRODYSAESTHESIA SYNDROME [None]
